FAERS Safety Report 9319413 (Version 1)
Quarter: 2013Q2

REPORT INFORMATION
  Report Type: Spontaneous
  Country: US (occurrence: None)
  Receive Date: 20130529
  Receipt Date: 20130529
  Transmission Date: 20140414
  Serious: Yes (Other)
  Sender: FDA-Public Use
  Company Number: None

PATIENT
  Sex: Male
  Weight: 58.97 kg

DRUGS (1)
  1. ISONIAZID [Suspect]
     Dates: start: 20070712, end: 20070402

REACTIONS (2)
  - Treatment noncompliance [None]
  - Renal disorder [None]
